FAERS Safety Report 4333588-X (Version None)
Quarter: 2004Q1

REPORT INFORMATION
  Report Type: 
  Country: None (occurrence: None)
  Receive Date: 20040329
  Receipt Date: 20040115
  Transmission Date: 20041129
  Serious: No
  Sender: FDA-Public Use
  Company Number: 04P-163-0247269-00

PATIENT
  Age: 50 Year
  Sex: Female
  Weight: 99.7913 kg

DRUGS (14)
  1. HUMIRA [Suspect]
     Indication: RHEUMATOID ARTHRITIS
     Dosage: 40 MG, 1 IN 2 WK, SUBCUTANEOUS
     Route: 058
     Dates: start: 20030401, end: 20030926
  2. METHOTREXATE [Concomitant]
  3. PREDNISONE [Concomitant]
  4. ALENDRONATE SODIUM [Concomitant]
  5. CELECOXIB [Concomitant]
  6. VICODIN [Concomitant]
  7. BORAGE OIL [Concomitant]
  8. CALCIUM [Concomitant]
  9. ASCORBIC ACID [Concomitant]
  10. METOPROLOL TARTRATE [Concomitant]
  11. DYAZIDE [Concomitant]
  12. CLARINEX [Concomitant]
  13. ALBUTEROL SULFATE [Concomitant]
  14. IPRATROPIUM BROMIDE [Concomitant]

REACTIONS (2)
  - EAR INFECTION [None]
  - SINUSITIS [None]
